FAERS Safety Report 25762035 (Version 1)
Quarter: 2025Q3

REPORT INFORMATION
  Report Type: Spontaneous
  Country: CA (occurrence: CA)
  Receive Date: 20250904
  Receipt Date: 20250904
  Transmission Date: 20251021
  Serious: Yes (Disabling)
  Sender: BAUSCH AND LOMB
  Company Number: CA-BAUSCH-BH-2025-017047

PATIENT
  Age: 35 Year
  Sex: Male

DRUGS (1)
  1. BUDESONIDE [Suspect]
     Active Substance: BUDESONIDE
     Indication: Eosinophilic oesophagitis
     Route: 065

REACTIONS (2)
  - Chest pain [Unknown]
  - Palpitations [Unknown]
